FAERS Safety Report 7065994-7 (Version None)
Quarter: 2010Q4

REPORT INFORMATION
  Report Type: 
  Country: None (occurrence: None)
  Receive Date: 20101027
  Receipt Date: 20100514
  Transmission Date: 20110411
  Serious: Yes (Other)
  Sender: FDA-Public Use
  Company Number: HQWYE089414AUG03

PATIENT
  Sex: Female
  Weight: 79.45 kg

DRUGS (8)
  1. PREMPRO [Suspect]
     Indication: HOT FLUSH
     Dosage: 0.625MG/2.5MG
     Route: 048
     Dates: end: 20000101
  2. PREMPRO [Suspect]
     Indication: MENOPAUSE
  3. DIOVAN [Concomitant]
  4. PROVERA [Suspect]
     Indication: HORMONE REPLACEMENT THERAPY
     Dosage: 5MG
     Route: 048
  5. FOSAMAX [Concomitant]
  6. PREMARIN [Suspect]
     Indication: HORMONE REPLACEMENT THERAPY
     Dosage: 0.625MG DAILY
  7. TRICOR [Concomitant]
  8. SYNTHROID [Concomitant]
     Indication: THYROIDITIS

REACTIONS (1)
  - BREAST CANCER [None]
